FAERS Safety Report 7542440 (Version 4)
Quarter: 2015Q2

REPORT INFORMATION
  Report Type: Spontaneous
  Country: US (occurrence: US)
  Receive Date: 20100816
  Receipt Date: 20150508
  Transmission Date: 20150821
  Serious: Yes (Hospitalization, Other)
  Sender: FDA-Public Use
  Company Number: US-AMGEN-QUU429880

PATIENT
  Age: 69 Year
  Sex: Female

DRUGS (1)
  1. ENBREL [Suspect]
     Active Substance: ETANERCEPT
     Indication: ANKYLOSING SPONDYLITIS
     Dosage: 50 MG
     Route: 065
     Dates: start: 20081105

REACTIONS (8)
  - Mass [Unknown]
  - Gait disturbance [Not Recovered/Not Resolved]
  - Injection site bruising [Recovered/Resolved]
  - Ankylosing spondylitis [Not Recovered/Not Resolved]
  - Chondrolysis [Recovered/Resolved]
  - Haemorrhagic diathesis [Recovered/Resolved]
  - Blood heavy metal increased [Unknown]
  - Vascular injury [Recovered/Resolved]

NARRATIVE: CASE EVENT DATE: 20100401
